FAERS Safety Report 6488046-3 (Version None)
Quarter: 2009Q4

REPORT INFORMATION
  Report Type: 
  Country: None (occurrence: None)
  Receive Date: 20091210
  Receipt Date: 20091117
  Transmission Date: 20100525
  Serious: Yes (Hospitalization)
  Sender: FDA-Public Use
  Company Number: JP-MERCK-0911USA03645

PATIENT
  Age: 46 Year
  Sex: Female
  Weight: 46 kg

DRUGS (4)
  1. PEPCID [Suspect]
     Route: 048
  2. PREDNISOLONE [Suspect]
     Route: 048
  3. VALSARTAN [Concomitant]
     Route: 048
  4. PREDNISOLONE [Suspect]
     Route: 048

REACTIONS (1)
  - AUTOIMMUNE HEPATITIS [None]
